FAERS Safety Report 17232750 (Version 5)
Quarter: 2020Q3

REPORT INFORMATION
  Report Type: Spontaneous
  Country: US (occurrence: US)
  Receive Date: 20200103
  Receipt Date: 20200817
  Transmission Date: 20201102
  Serious: No
  Sender: FDA-Public Use
  Company Number: US-ACTELION-A-NJ2020-200097

PATIENT
  Age: 73 Year
  Sex: Female
  Weight: 53.52 kg

DRUGS (3)
  1. OPSUMIT [Suspect]
     Active Substance: MACITENTAN
     Indication: PULMONARY ARTERIAL HYPERTENSION
     Dosage: 10 MG, QD
     Route: 048
     Dates: start: 20191216
  2. TADALAFIL. [Concomitant]
     Active Substance: TADALAFIL
  3. XARELTO [Suspect]
     Active Substance: RIVAROXABAN
     Indication: CEREBROVASCULAR ACCIDENT PROPHYLAXIS
     Dosage: UNK
     Route: 048
     Dates: start: 2020

REACTIONS (9)
  - Atrial fibrillation [Recovered/Resolved]
  - Malaise [Unknown]
  - Productive cough [Unknown]
  - Abdominal pain upper [Recovering/Resolving]
  - Gastric disorder [Unknown]
  - Cough [Unknown]
  - Urinary tract infection [Unknown]
  - Upper-airway cough syndrome [Unknown]
  - Nasopharyngitis [Unknown]

NARRATIVE: CASE EVENT DATE: 201912
